FAERS Safety Report 5601233-9 (Version None)
Quarter: 2008Q1

REPORT INFORMATION
  Report Type: 
  Country: None (occurrence: None)
  Receive Date: 20080122
  Receipt Date: 20080122
  Transmission Date: 20080703
  Serious: Yes (Hospitalization)
  Sender: FDA-Public Use
  Company Number: None

PATIENT
  Age: 72 Year
  Sex: Male
  Weight: 83.5 kg

DRUGS (1)
  1. INSULIN [Suspect]
     Indication: DIABETES MELLITUS
     Dosage: 2UNITS BID SQ
     Route: 058
     Dates: start: 20070418, end: 20080109

REACTIONS (4)
  - COLD SWEAT [None]
  - DIZZINESS [None]
  - HYPOGLYCAEMIA [None]
  - NERVOUSNESS [None]
